FAERS Safety Report 23247146 (Version 3)
Quarter: 2023Q4

REPORT INFORMATION
  Report Type: Report from Study
  Country: US (occurrence: US)
  Receive Date: 20231130
  Receipt Date: 20231219
  Transmission Date: 20240110
  Serious: Yes (Hospitalization, Other)
  Sender: FDA-Public Use
  Company Number: US-TAKEDA-2023TUS115353

PATIENT
  Age: 7 Year
  Sex: Female

DRUGS (8)
  1. TEDUGLUTIDE [Suspect]
     Active Substance: TEDUGLUTIDE
     Indication: Short-bowel syndrome
     Dosage: 1.1 MILLIGRAM, QD
     Route: 042
     Dates: start: 20230609
  2. TEDUGLUTIDE [Suspect]
     Active Substance: TEDUGLUTIDE
     Indication: Short-bowel syndrome
     Dosage: 1.1 MILLIGRAM, QD
     Route: 042
     Dates: start: 20230609
  3. TEDUGLUTIDE [Suspect]
     Active Substance: TEDUGLUTIDE
     Indication: Short-bowel syndrome
     Dosage: 1.1 MILLIGRAM, QD
     Route: 042
     Dates: start: 20230609
  4. TEDUGLUTIDE [Suspect]
     Active Substance: TEDUGLUTIDE
     Indication: Short-bowel syndrome
     Dosage: 1.1 MILLIGRAM, QD
     Route: 042
     Dates: start: 20230609
  5. SUCRALFATE [Concomitant]
     Active Substance: SUCRALFATE
     Indication: Haematemesis
     Dosage: 10 MILLILITER, TID
     Route: 050
     Dates: start: 20230915
  6. LOVENOX [Concomitant]
     Active Substance: ENOXAPARIN SODIUM
     Indication: Thrombosis
     Dosage: 20 MILLIGRAM, BID
     Route: 058
     Dates: start: 20220725
  7. FERROUS SULFATE [Concomitant]
     Active Substance: FERROUS SULFATE
     Indication: Anaemia
     Dosage: 4 MILLILITER, BID
     Route: 050
     Dates: start: 20220325
  8. CALCIUM CARBONATE [Concomitant]
     Active Substance: CALCIUM CARBONATE
     Indication: Mineral supplementation
     Dosage: 4 MILLILITER, QD
     Route: 048
     Dates: start: 20220325, end: 20220819

REACTIONS (1)
  - Haematemesis [Recovered/Resolved]

NARRATIVE: CASE EVENT DATE: 20230915
